FAERS Safety Report 21787812 (Version 3)
Quarter: 2024Q3

REPORT INFORMATION
  Report Type: Spontaneous
  Country: US (occurrence: US)
  Receive Date: 20221228
  Receipt Date: 20240718
  Transmission Date: 20241017
  Serious: No
  Sender: SANOFI AVENTIS
  Company Number: US-SA-SAC20221222001388

PATIENT
  Sex: Female
  Weight: 47.6 kg

DRUGS (2)
  1. DUPIXENT [Suspect]
     Active Substance: DUPILUMAB
     Indication: Dermatitis atopic
     Dosage: 300 MG, QOW
     Route: 058
     Dates: start: 2019, end: 202210
  2. NICOTINE [Concomitant]
     Active Substance: NICOTINE

REACTIONS (5)
  - Ocular hyperaemia [Unknown]
  - Eye pruritus [Unknown]
  - Therapeutic response decreased [Unknown]
  - Injection site swelling [Unknown]
  - Injection site erythema [Unknown]
